FAERS Safety Report 8916695 (Version 1)
Quarter: 2012Q4

REPORT INFORMATION
  Report Type: 
  Country: SE (occurrence: SE)
  Receive Date: 20121120
  Receipt Date: 20121120
  Transmission Date: 20130627
  Serious: Yes (Hospitalization)
  Sender: FDA-Public Use
  Company Number: SE-PFIZER INC-2012284716

PATIENT
  Age: 79 Year
  Sex: Female
  Weight: 74.8 kg

DRUGS (3)
  1. GENOTROPIN [Suspect]
     Dosage: 0.3 mg, 1x/day, 7 injections/week
     Route: 058
     Dates: start: 20001208
  2. LEVAXIN [Concomitant]
     Indication: TSH DECREASED
     Dosage: UNK
     Dates: start: 19701001
  3. HYDROCORTISON [Concomitant]
     Indication: ACTH DECREASED
     Dosage: UNK
     Dates: start: 20050101

REACTIONS (1)
  - Malaise [Unknown]
